FAERS Safety Report 17833793 (Version 1)
Quarter: 2020Q2

REPORT INFORMATION
  Report Type: Spontaneous
  Country: US (occurrence: US)
  Receive Date: 20200528
  Receipt Date: 20200528
  Transmission Date: 20200714
  Serious: Yes (Disabling)
  Sender: FDA-Public Use
  Company Number: None

PATIENT
  Age: 40 Year
  Sex: Female
  Weight: 103.5 kg

DRUGS (1)
  1. IBUPROFEN CAPSULE 200MG [Suspect]
     Active Substance: IBUPROFEN
     Indication: HEADACHE
     Dosage: ?          QUANTITY:1 CAPSULE(S);?
     Route: 048
     Dates: start: 20200527, end: 20200528

REACTIONS (3)
  - Product friable [None]
  - Nausea [None]
  - Poor quality product administered [None]

NARRATIVE: CASE EVENT DATE: 20200527
